FAERS Safety Report 5840880-6 (Version None)
Quarter: 2008Q3

REPORT INFORMATION
  Report Type: 
  Country: None (occurrence: None)
  Receive Date: 20080730
  Receipt Date: 20080331
  Transmission Date: 20090109
  Serious: Yes (Hospitalization)
  Sender: FDA-Public Use
  Company Number: PHEH2007US16125

PATIENT
  Age: 72 Year
  Sex: Female
  Weight: 74.8 kg

DRUGS (9)
  1. TEKTURNA [Suspect]
     Indication: HYPERTENSION
     Dosage: 150 MG, ORAL; 300 MG; 150 MG
     Route: 048
     Dates: start: 20070913, end: 20071011
  2. TEKTURNA [Suspect]
     Indication: HYPERTENSION
     Dosage: 150 MG, ORAL; 300 MG; 150 MG
     Route: 048
     Dates: start: 20071012, end: 20071210
  3. BENAZEPRIL HYDROCHLORIDE [Suspect]
     Indication: HYPERTENSION
  4. CATAPRES /USA/ (CLONIDINE HYDROCHLORIDE) [Suspect]
     Indication: HYPERTENSION
     Dosage: 0.02 MG, BID, ORAL; 0.02 MG, TRANSDERMAL; 0.03 MG, TRANSDERMAL
     Route: 048
     Dates: start: 20071210, end: 20071224
  5. CATAPRES /USA/ (CLONIDINE HYDROCHLORIDE) [Suspect]
     Indication: HYPERTENSION
     Dosage: 0.02 MG, BID, ORAL; 0.02 MG, TRANSDERMAL; 0.03 MG, TRANSDERMAL
     Route: 048
     Dates: start: 20071224, end: 20080103
  6. CATAPRES /USA/ (CLONIDINE HYDROCHLORIDE) [Suspect]
     Indication: HYPERTENSION
     Dosage: 0.02 MG, BID, ORAL; 0.02 MG, TRANSDERMAL; 0.03 MG, TRANSDERMAL
     Route: 048
     Dates: start: 20080103
  7. COREG [Suspect]
     Indication: HYPERTENSION
     Dosage: 25 MG, BID
  8. LASIX [Suspect]
     Indication: HYPERTENSION
     Dosage: QD
  9. ATACAND [Suspect]
     Dosage: 16 MG; 32 MG
     Dates: start: 20071224

REACTIONS (5)
  - BLOOD PRESSURE FLUCTUATION [None]
  - BLOOD PRESSURE INCREASED [None]
  - HEADACHE [None]
  - MALAISE [None]
  - SOMNOLENCE [None]
